FAERS Safety Report 6025256-3 (Version None)
Quarter: 2008Q4

REPORT INFORMATION
  Report Type: 
  Country: None (occurrence: None)
  Receive Date: 20081222
  Receipt Date: 20081110
  Transmission Date: 20090506
  Serious: No
  Sender: FDA-Public Use
  Company Number: ALL1-2008-03249

PATIENT
  Age: 4 Year
  Sex: Male
  Weight: 162 kg

DRUGS (2)
  1. VYVANSE [Suspect]
     Indication: ATTENTION DEFICIT/HYPERACTIVITY DISORDER
     Dosage: 30 MG ; 20 MG
     Dates: start: 20080901, end: 20080903
  2. VYVANSE [Suspect]
     Indication: ATTENTION DEFICIT/HYPERACTIVITY DISORDER
     Dosage: 30 MG ; 20 MG
     Dates: start: 20080901

REACTIONS (2)
  - OFF LABEL USE [None]
  - VOMITING [None]
